FAERS Safety Report 9139075 (Version 2)
Quarter: 2017Q2

REPORT INFORMATION
  Report Type: Report from Study
  Country: IT (occurrence: IT)
  Receive Date: 20130305
  Receipt Date: 20170523
  Transmission Date: 20170830
  Serious: Yes (Death, Hospitalization, Disabling, Other)
  Sender: FDA-Public Use
  Company Number: IT-MPIJNJ-2012-08117

PATIENT
  Age: 8 Year
  Sex: Male

DRUGS (10)
  1. VELCADE [Suspect]
     Active Substance: BORTEZOMIB
     Indication: ACUTE LYMPHOCYTIC LEUKAEMIA
     Dosage: 3.84 MG, UNK
     Route: 042
     Dates: start: 20121029, end: 20121105
  2. VINCRISTINE [Suspect]
     Active Substance: VINCRISTINE
     Indication: ACUTE LYMPHOCYTIC LEUKAEMIA
     Dosage: 1.45 MG, UNK
     Route: 042
     Dates: start: 20121105, end: 20121105
  3. MORPHINE [Concomitant]
     Active Substance: MORPHINE
     Indication: PAIN
     Dosage: 20 MG, UNK
     Route: 042
     Dates: start: 20121026, end: 20121102
  4. MORPHINE [Concomitant]
     Active Substance: MORPHINE
     Dosage: 30 MG, UNK
     Route: 042
     Dates: start: 20121105, end: 20121105
  5. MEROPENEM. [Concomitant]
     Active Substance: MEROPENEM
     Indication: PYREXIA
     Dosage: 1800 MG, UNK
     Route: 042
     Dates: start: 20121024, end: 20121108
  6. DEXAMETHASONE. [Suspect]
     Active Substance: DEXAMETHASONE
     Indication: ACUTE LYMPHOCYTIC LEUKAEMIA
     Dosage: 99 MG, UNK
     Route: 042
     Dates: start: 20121029, end: 20121107
  7. MORPHINE [Concomitant]
     Active Substance: MORPHINE
     Dosage: 50 MG, UNK
     Dates: start: 20121106, end: 20121108
  8. TEICOPLANIN [Concomitant]
     Active Substance: TEICOPLANIN
     Dosage: 300 MG, UNK
     Route: 042
     Dates: start: 20121024, end: 20121108
  9. METHOTREXATE. [Suspect]
     Active Substance: METHOTREXATE
     Indication: ACUTE LYMPHOCYTIC LEUKAEMIA
     Dosage: 12 MG, UNK
     Route: 065
     Dates: start: 20121029, end: 20121120
  10. AMPHOTERICIN B. [Concomitant]
     Active Substance: AMPHOTERICIN B
     Indication: PYREXIA
     Dosage: 100 MG, UNK
     Route: 065
     Dates: start: 20121024, end: 20121102

REACTIONS (2)
  - Ileus [Fatal]
  - Lung infection [Fatal]

NARRATIVE: CASE EVENT DATE: 20121106
